FAERS Safety Report 7216549-2 (Version None)
Quarter: 2011Q1

REPORT INFORMATION
  Report Type: 
  Country: None (occurrence: None)
  Receive Date: 20110110
  Receipt Date: 20110105
  Transmission Date: 20110831
  Serious: Yes (Death, Other)
  Sender: FDA-Public Use
  Company Number: GB-AMGEN-GBRSP2011000748

PATIENT

DRUGS (3)
  1. ENBREL [Suspect]
     Indication: RHEUMATOID ARTHRITIS
     Dosage: 25 MG, 2X/WEEK
     Route: 058
     Dates: start: 20030101, end: 20060101
  2. AZATHIOPRINE [Suspect]
     Indication: RHEUMATOID ARTHRITIS
     Dosage: 125 MG, 1X/DAY
     Route: 048
     Dates: start: 20060511, end: 20100513
  3. GOLD [Suspect]
     Indication: RHEUMATOID ARTHRITIS
     Dosage: 50 MG, ONCE EVERY 2 WEEKS
     Route: 030
     Dates: start: 20071113, end: 20100513

REACTIONS (3)
  - SMALL INTESTINAL PERFORATION [None]
  - NON-HODGKIN'S LYMPHOMA [None]
  - INTESTINAL PERFORATION [None]
